FAERS Safety Report 22300525 (Version 1)
Quarter: 2023Q2

REPORT INFORMATION
  Report Type: Spontaneous
  Country: CH (occurrence: CH)
  Receive Date: 20230509
  Receipt Date: 20230509
  Transmission Date: 20230721
  Serious: Yes (Hospitalization, Other)
  Sender: FDA-Public Use
  Company Number: CH-FreseniusKabi-FK202213649

PATIENT
  Age: 61 Year
  Sex: Female

DRUGS (4)
  1. ETOPOSIDE [Suspect]
     Active Substance: ETOPOSIDE
     Indication: Small cell lung cancer
     Dosage: SECOND CYCLE
     Dates: start: 201911
  2. ETOPOSIDE [Suspect]
     Active Substance: ETOPOSIDE
     Dosage: 16-STEP DESENSITIZATION PROTOCOL (TOTAL DOSE: 100 MG)
  3. ETOPOSIDE [Suspect]
     Active Substance: ETOPOSIDE
     Dosage: DESENSITIZATION PROTOCOL CHANGED FOR A TOTAL DOSE OF 50 MG (16 STEPS)?ADMINISTERED TWO MORE CYCLES
  4. CISPLATIN [Suspect]
     Active Substance: CISPLATIN
     Indication: Small cell lung cancer
     Dosage: SECOND CYCLE
     Dates: start: 201911

REACTIONS (3)
  - Atrial fibrillation [Unknown]
  - Hypersensitivity [Unknown]
  - Haematotoxicity [Unknown]
